FAERS Safety Report 10431256 (Version 1)
Quarter: 2014Q3

REPORT INFORMATION
  Report Type: Spontaneous
  Country: US (occurrence: None)
  Receive Date: 20140903
  Receipt Date: 20140903
  Transmission Date: 20150326
  Serious: Yes (Other)
  Sender: FDA-Public Use
  Company Number: 001792943A

PATIENT
  Age: 20 Year
  Sex: Female

DRUGS (4)
  1. PROACTIV SOLUTION ADVANCED DAILY OIL CONTROL [Suspect]
     Active Substance: SALICYLIC ACID
     Indication: ACNE
     Dosage: DERMAL
     Dates: start: 20140717
  2. PROACTIV SPF 15 MOISTURIZER [Suspect]
     Active Substance: OCTINOXATE\ZINC OXIDE
     Indication: ACNE
     Dosage: DERMAL
     Dates: start: 20140717
  3. PROACTIV REPAIRING TREATMENT [Suspect]
     Active Substance: BENZOYL PEROXIDE
     Indication: ACNE
     Dosage: DERMAL
     Dates: start: 20140717
  4. PROACTIV SOLUTION RENEWING CLEANSER [Suspect]
     Active Substance: BENZOYL PEROXIDE
     Indication: ACNE
     Dosage: DERMAL
     Dates: start: 20140717

REACTIONS (4)
  - Eye swelling [None]
  - Pharyngeal oedema [None]
  - Swelling face [None]
  - Burning sensation [None]

NARRATIVE: CASE EVENT DATE: 20140717
